FAERS Safety Report 9253985 (Version 2)
Quarter: 2013Q3

REPORT INFORMATION
  Report Type: Spontaneous
  Country: BR (occurrence: BR)
  Receive Date: 20130425
  Receipt Date: 20130715
  Transmission Date: 20140515
  Serious: Yes (Other)
  Sender: FDA-Public Use
  Company Number: BR-AMGEN-BRACT2012001514

PATIENT
  Age: 42 Year
  Sex: Female
  Weight: 75 kg

DRUGS (9)
  1. ENBREL [Suspect]
     Indication: ANKYLOSING SPONDYLITIS
     Dosage: 50 MG, QWK
     Route: 058
     Dates: start: 201112
  2. ENBREL [Suspect]
     Dosage: UNK
     Route: 065
  3. METHOTREXATE [Concomitant]
     Dosage: 50 MG, WEEKLY
     Route: 048
     Dates: start: 2011
  4. METHOTREXATE [Concomitant]
     Dosage: 1 (UNSPECIFIED DOSE) WEEKLY, 10 TABLETS
     Route: 048
  5. CELEBRA [Concomitant]
     Dosage: 200 MG, 2X/DAY
     Dates: start: 2010
  6. FOLIC ACID [Concomitant]
     Dosage: 5 MG, WEEKLY
  7. SERTRALINE [Concomitant]
     Dosage: 50 MG, 1X/DAY
     Route: 048
     Dates: start: 201001
  8. OMEPRAZOLE [Concomitant]
     Indication: ABDOMINAL PAIN UPPER
     Dosage: 20 MG, AS NEEDED (WHEN FEELING STOMACH PAIN)
  9. DOLAMIN FLEX [Concomitant]
     Dosage: 125 MG, 2X/DAY

REACTIONS (6)
  - Inguinal hernia [Unknown]
  - Local swelling [Not Recovered/Not Resolved]
  - Malaise [Unknown]
  - Pain [Unknown]
  - Nausea [Unknown]
  - Pyrexia [Unknown]
